FAERS Safety Report 25008758 (Version 3)
Quarter: 2025Q2

REPORT INFORMATION
  Report Type: Spontaneous
  Country: US (occurrence: US)
  Receive Date: 20250225
  Receipt Date: 20250422
  Transmission Date: 20250716
  Serious: No
  Sender: PFIZER
  Company Number: US-PFIZER INC-202500039089

PATIENT
  Sex: Female

DRUGS (1)
  1. DEPO-PROVERA [Suspect]
     Active Substance: MEDROXYPROGESTERONE ACETATE
     Indication: Endometriosis
     Dosage: UNK, EVERY 3 MONTHS

REACTIONS (5)
  - Device malfunction [Unknown]
  - Device occlusion [Unknown]
  - Incorrect dose administered by device [Unknown]
  - Illness [Unknown]
  - Off label use [Unknown]
